FAERS Safety Report 4511030-3 (Version None)
Quarter: 2004Q4

REPORT INFORMATION
  Report Type: 
  Country: None (occurrence: None)
  Receive Date: 20041018
  Receipt Date: 20040716
  Transmission Date: 20050328
  Serious: No
  Sender: FDA-Public Use
  Company Number: 207918

PATIENT
  Age: 34 Year
  Sex: Female
  Weight: 69.4 kg

DRUGS (21)
  1. XOLAIR [Suspect]
     Indication: ASTHMA
     Dosage: 225 MG, 1/MONTH, SUBCUTANEOUS
     Route: 058
     Dates: start: 20040715
  2. RHINOCORT [Concomitant]
  3. XOPENEX [Concomitant]
  4. VENTOLIN INHALER (ALBUTEROL, ALBUTEROL SULFATE) [Concomitant]
  5. SPIRIVA [Concomitant]
  6. ADVAIR (SALMETEROL XINAFOATE, FLUTICASONE PROPIONATE) [Concomitant]
  7. ACCOLAET (ZAFIRLUKAST) [Concomitant]
  8. CLARINEX [Concomitant]
  9. FOLIC ACID [Concomitant]
  10. ACIPHEX [Concomitant]
  11. PHENOBARBITAL TAB [Concomitant]
  12. BACTRIM (DC) (TRIMETHOPRIM, SULFAMETHOXAZOLE) [Concomitant]
  13. PREDNISONE [Concomitant]
  14. FOSAMAX [Concomitant]
  15. CALCIUM/VITAMIN D (CALCIUM NOS, CHOLECALCIFEROL) [Concomitant]
  16. IBUPROFEN [Concomitant]
  17. GLUCOSAMINE (GLUCOSAMINE) [Concomitant]
  18. CHONDROITIN (CHONDROITIN SULFATE) [Concomitant]
  19. MAXAIR [Concomitant]
  20. IMITREX [Concomitant]
  21. ELAVIL [Concomitant]

REACTIONS (1)
  - HYPERSENSITIVITY [None]
